FAERS Safety Report 8571642 (Version 5)
Quarter: 2013Q3

REPORT INFORMATION
  Report Type: Spontaneous
  Country: US (occurrence: US)
  Receive Date: 20120521
  Receipt Date: 20130812
  Transmission Date: 20140515
  Serious: Yes (Death, Hospitalization, Disabling, Other)
  Sender: FDA-Public Use
  Company Number: US-009507513-1205USA02829

PATIENT
  Sex: Female

DRUGS (4)
  1. FOSAMAX [Suspect]
     Indication: OSTEOPOROSIS
     Dosage: 1 DAILY
     Route: 048
     Dates: start: 199601
  2. FOSAMAX [Suspect]
     Dosage: 10 MG, UNK
     Route: 048
     Dates: start: 199602, end: 200706
  3. FOSAMAX [Suspect]
     Dosage: 20 MG, UNK
     Route: 048
     Dates: start: 199602, end: 200706
  4. NORVASC [Suspect]

REACTIONS (25)
  - Femur fracture [Recovered/Resolved]
  - Open reduction of fracture [Not Recovered/Not Resolved]
  - Fall [Unknown]
  - Pain [Not Recovered/Not Resolved]
  - Removal of internal fixation [Unknown]
  - Osteoporosis [Not Recovered/Not Resolved]
  - Stress fracture [Not Recovered/Not Resolved]
  - Low turnover osteopathy [Not Recovered/Not Resolved]
  - Failure to thrive [Fatal]
  - Skin cancer [Unknown]
  - Stasis dermatitis [Unknown]
  - Kyphosis [Unknown]
  - Pneumonia [Unknown]
  - Hyperlipidaemia [Unknown]
  - Hypertension [Unknown]
  - Osteoarthritis [Unknown]
  - Scoliosis [Unknown]
  - Intervertebral disc protrusion [Unknown]
  - Bursitis [Unknown]
  - Inappropriate schedule of drug administration [Unknown]
  - Cardiac failure congestive [Unknown]
  - Myocardial ischaemia [Unknown]
  - Arthralgia [Unknown]
  - Oedema peripheral [Unknown]
  - Oedema peripheral [Unknown]
